FAERS Safety Report 5532356-0 (Version None)
Quarter: 2007Q4

REPORT INFORMATION
  Report Type: 
  Country: None (occurrence: None)
  Receive Date: 20071203
  Receipt Date: 20071120
  Transmission Date: 20080405
  Serious: Yes (Other)
  Sender: FDA-Public Use
  Company Number: US-AMGEN-US253379

PATIENT
  Sex: Female
  Weight: 65.8 kg

DRUGS (10)
  1. ENBREL [Suspect]
     Indication: RHEUMATOID ARTHRITIS
     Route: 058
     Dates: start: 20061104, end: 20070606
  2. PRENATAL VITAMINS [Concomitant]
     Route: 048
     Dates: start: 20070123, end: 20070609
  3. FOLIC ACID [Concomitant]
     Route: 048
     Dates: start: 20061210, end: 20070609
  4. VITAMIN B-12 [Concomitant]
     Route: 048
     Dates: start: 20061104, end: 20070205
  5. CAFFEINE [Concomitant]
     Route: 048
     Dates: start: 20061104, end: 20070609
  6. NEXIUM [Concomitant]
     Route: 048
     Dates: start: 20061104, end: 20070606
  7. DICYCLOMINE HYDROCHLORIDE [Concomitant]
     Route: 048
     Dates: start: 20061104, end: 20070609
  8. TYLENOL [Concomitant]
     Route: 048
     Dates: start: 20061104, end: 20070123
  9. TYLENOL [Concomitant]
     Route: 048
     Dates: start: 20070124, end: 20070606
  10. SINGULAIR [Concomitant]
     Route: 048
     Dates: start: 20061104, end: 20070501

REACTIONS (1)
  - PREGNANCY INDUCED HYPERTENSION [None]
